FAERS Safety Report 12187413 (Version 2)
Quarter: 2016Q2

REPORT INFORMATION
  Report Type: Report from Study
  Country: CO (occurrence: CO)
  Receive Date: 20160317
  Receipt Date: 20160418
  Transmission Date: 20160815
  Serious: Yes (Death, Hospitalization, Other)
  Sender: FDA-Public Use
  Company Number: PHHY2016CO035334

PATIENT
  Age: 42 Year
  Sex: Female

DRUGS (1)
  1. AFINITOR [Suspect]
     Active Substance: EVEROLIMUS
     Indication: BREAST CANCER
     Dosage: 2.5 MG, QD
     Route: 048
     Dates: start: 20150624

REACTIONS (4)
  - Respiratory arrest [Fatal]
  - Pulmonary oedema [Unknown]
  - Metastases to lung [Unknown]
  - Metastases to ovary [Unknown]

NARRATIVE: CASE EVENT DATE: 20160407
